FAERS Safety Report 22279192 (Version 2)
Quarter: 2023Q4

REPORT INFORMATION
  Report Type: Spontaneous
  Country: CA (occurrence: CA)
  Receive Date: 20230503
  Receipt Date: 20231024
  Transmission Date: 20240110
  Serious: Yes (Hospitalization)
  Sender: FDA-Public Use
  Company Number: CA-Covis Pharma Europe B.V.-2023COV01034

PATIENT
  Age: 74 Year
  Sex: Male

DRUGS (5)
  1. ALVESCO [Suspect]
     Active Substance: CICLESONIDE
     Indication: Asthma
     Route: 065
  2. FLUTICASONE PROPIONATE\SALMETEROL XINAFOATE [Suspect]
     Active Substance: FLUTICASONE PROPIONATE\SALMETEROL XINAFOATE
     Route: 065
  3. NUCALA [Suspect]
     Active Substance: MEPOLIZUMAB
     Indication: Asthma
     Route: 042
  4. NUCALA [Suspect]
     Active Substance: MEPOLIZUMAB
     Route: 042
  5. SINGULAIR [Suspect]
     Active Substance: MONTELUKAST SODIUM
     Indication: Asthma
     Route: 065

REACTIONS (10)
  - Cardiac disorder [Unknown]
  - Epistaxis [Unknown]
  - Asthma [Unknown]
  - Full blood count abnormal [Unknown]
  - Hospitalisation [Unknown]
  - Lung diffusion test decreased [Unknown]
  - Obstructive airways disorder [Unknown]
  - Restrictive pulmonary disease [Unknown]
  - Therapeutic product effect incomplete [Unknown]
  - Weight increased [Unknown]
